FAERS Safety Report 18199269 (Version 1)
Quarter: 2020Q3

REPORT INFORMATION
  Report Type: Spontaneous
  Country: CN (occurrence: CN)
  Receive Date: 20200826
  Receipt Date: 20200826
  Transmission Date: 20201103
  Serious: Yes (Hospitalization)
  Sender: FDA-Public Use
  Company Number: CN-ALLERGAN-2031774US

PATIENT
  Sex: Male

DRUGS (3)
  1. PRANOPROFEN [Suspect]
     Active Substance: PRANOPROFEN
     Indication: INFECTION PROPHYLAXIS
     Dosage: 1 GTT, QID
     Route: 047
     Dates: start: 20200723, end: 20200729
  2. MIKELAN [Suspect]
     Active Substance: CARTEOLOL HYDROCHLORIDE
     Indication: OCULAR HYPERTENSION
     Dosage: 1 GTT, BID
     Route: 047
     Dates: start: 20200723, end: 20200729
  3. BRIMONIDINE [Suspect]
     Active Substance: BRIMONIDINE TARTRATE
     Indication: OCULAR HYPERTENSION
     Dosage: 1 GTT, TID
     Route: 047
     Dates: start: 20200723, end: 20200729

REACTIONS (1)
  - Punctate keratitis [Recovering/Resolving]

NARRATIVE: CASE EVENT DATE: 20200729
